FAERS Safety Report 21254992 (Version 1)
Quarter: 2022Q3

REPORT INFORMATION
  Report Type: Report from Study
  Country: BR (occurrence: BR)
  Receive Date: 20220825
  Receipt Date: 20220825
  Transmission Date: 20221027
  Serious: Yes (Other)
  Sender: FDA-Public Use
  Company Number: BR-NOVARTISPH-NVSC2022BR190083

PATIENT
  Sex: Female

DRUGS (2)
  1. GLIVEC [Suspect]
     Active Substance: IMATINIB MESYLATE
     Indication: Product used for unknown indication
     Dosage: UNK(NI)
     Route: 065
     Dates: start: 20121101, end: 20131017
  2. TASIGNA [Suspect]
     Active Substance: NILOTINIB
     Indication: Product used for unknown indication
     Dosage: 200 MG (2 IN MORNING AND 2 IN EVENING)
     Route: 065
     Dates: start: 20131017

REACTIONS (6)
  - Neoplasm malignant [Unknown]
  - Memory impairment [Unknown]
  - Sluggishness [Unknown]
  - Malaise [Unknown]
  - Head discomfort [Unknown]
  - Drug ineffective [Unknown]

NARRATIVE: CASE EVENT DATE: 20120101
